APPROVED DRUG PRODUCT: SUCOSTRIN
Active Ingredient: SUCCINYLCHOLINE CHLORIDE
Strength: 100MG/ML
Dosage Form/Route: INJECTABLE;INJECTION
Application: N008847 | Product #003
Applicant: APOTHECON INC DIV BRISTOL MYERS SQUIBB
Approved: Approved Prior to Jan 1, 1982 | RLD: Yes | RS: No | Type: DISCN